FAERS Safety Report 8464238 (Version 6)
Quarter: 2013Q2

REPORT INFORMATION
  Report Type: Spontaneous
  Country: US (occurrence: US)
  Receive Date: 20120316
  Receipt Date: 20130412
  Transmission Date: 20140414
  Serious: Yes (Hospitalization)
  Sender: FDA-Public Use
  Company Number: US-GILEAD-2012-0051809

PATIENT
  Sex: Female

DRUGS (2)
  1. LETAIRIS [Suspect]
     Indication: PULMONARY HYPERTENSION
     Dosage: 5 MG, UNK
     Route: 048
     Dates: start: 20080506
  2. REVATIO [Concomitant]

REACTIONS (6)
  - Device related infection [Unknown]
  - Hip arthroplasty [Unknown]
  - Hip surgery [Unknown]
  - Joint swelling [Unknown]
  - Local swelling [Unknown]
  - Dyspnoea [Unknown]
